FAERS Safety Report 19037927 (Version 2)
Quarter: 2021Q4

REPORT INFORMATION
  Report Type: Spontaneous
  Country: US (occurrence: US)
  Receive Date: 20210322
  Receipt Date: 20211022
  Transmission Date: 20220303
  Serious: Yes (Hospitalization, Other)
  Sender: FDA-Public Use
  Company Number: US-CIPLA LTD.-2021US01994

PATIENT

DRUGS (1)
  1. BUPROPION HYDROCHLORIDE XL [Suspect]
     Active Substance: BUPROPION HYDROCHLORIDE
     Dosage: 90 TABLETS (27000 MG, TOTAL)
     Route: 048

REACTIONS (8)
  - Brain stem syndrome [Recovered/Resolved]
  - Status epilepticus [Recovered/Resolved]
  - Chest discomfort [Recovered/Resolved]
  - Electrocardiogram QT prolonged [Recovered/Resolved]
  - Intentional overdose [Unknown]
  - Suicide attempt [Unknown]
  - Seizure [Recovered/Resolved]
  - Hypotension [Recovered/Resolved]
